FAERS Safety Report 13459517 (Version 2)
Quarter: 2017Q2

REPORT INFORMATION
  Report Type: Other
  Country: FR (occurrence: FR)
  Receive Date: 20170419
  Receipt Date: 20170524
  Transmission Date: 20170830
  Serious: Yes (Hospitalization)
  Sender: FDA-Public Use
  Company Number: FR-TAKEDA-2017TUS007898

PATIENT
  Age: 72 Year
  Sex: Male

DRUGS (5)
  1. DIFFU K [Concomitant]
     Active Substance: POTASSIUM CHLORIDE
     Indication: HYPOKALAEMIA
     Dosage: UNK, BID
     Route: 048
  2. PENTASA [Concomitant]
     Active Substance: MESALAMINE
     Indication: COLITIS
     Dosage: 1 G, BID
     Route: 048
  3. ENTYVIO [Suspect]
     Active Substance: VEDOLIZUMAB
     Indication: ENTEROCOLITIS HAEMORRHAGIC
     Dosage: 300 MG, UNK
     Route: 042
     Dates: start: 20151030, end: 20151113
  4. HYDROCORTISONE. [Concomitant]
     Active Substance: HYDROCORTISONE
     Indication: COLITIS
     Dosage: 20 MG, QD
     Route: 048
  5. LANTUS [Concomitant]
     Active Substance: INSULIN GLARGINE
     Indication: TYPE 2 DIABETES MELLITUS
     Dosage: 8 IU, QD

REACTIONS (3)
  - Lung abscess [Recovered/Resolved]
  - Secondary immunodeficiency [Recovered/Resolved]
  - Opportunistic infection [Unknown]

NARRATIVE: CASE EVENT DATE: 201511
